FAERS Safety Report 20578113 (Version 3)
Quarter: 2022Q2

REPORT INFORMATION
  Report Type: Spontaneous
  Country: US (occurrence: US)
  Receive Date: 20220310
  Receipt Date: 20220520
  Transmission Date: 20220720
  Serious: Yes (Other)
  Sender: FDA-Public Use
  Company Number: US-BAYER-2022A035573

PATIENT
  Age: 34 Year
  Sex: Female

DRUGS (1)
  1. KYLEENA [Suspect]
     Active Substance: LEVONORGESTREL
     Dosage: 17.5?G/DAY
     Route: 015
     Dates: start: 20210816, end: 20210816

REACTIONS (4)
  - Procedural haemorrhage [None]
  - Device deployment issue [None]
  - Complication of device insertion [None]
  - Device malfunction [None]

NARRATIVE: CASE EVENT DATE: 20210816
